FAERS Safety Report 9747751 (Version 1)
Quarter: 2013Q4

REPORT INFORMATION
  Report Type: Report from Study
  Country: US (occurrence: US)
  Receive Date: 20131212
  Receipt Date: 20131212
  Transmission Date: 20140711
  Serious: Yes (Hospitalization, Other)
  Sender: FDA-Public Use
  Company Number: US-ROCHE-1313805

PATIENT
  Age: 54 Year
  Sex: Male

DRUGS (12)
  1. RITUXAN [Suspect]
     Indication: LYMPHOMA
     Dosage: IVPB CYCLE 2 DAY 1
     Route: 042
     Dates: start: 20131118
  2. RITUXAN [Suspect]
     Dosage: IVPB CYCLE 3 DAY 1
     Route: 065
     Dates: start: 20131202
  3. RITUXAN [Suspect]
     Route: 065
     Dates: start: 20130814
  4. RITUXAN [Suspect]
     Route: 065
  5. KYTRIL [Suspect]
     Indication: PREMEDICATION
     Route: 048
  6. KYTRIL [Suspect]
     Route: 065
  7. CYTOXAN [Concomitant]
     Dosage: IN 250ML NS
     Route: 042
  8. BENADRYL (UNITED STATES) [Concomitant]
     Route: 042
  9. TYLENOL [Concomitant]
     Route: 048
  10. DECADRON [Concomitant]
     Route: 042
  11. VINCRISTINE [Concomitant]
     Route: 040
  12. OXALIPLATIN [Concomitant]

REACTIONS (7)
  - Urinary tract infection [Unknown]
  - Renal impairment [Unknown]
  - Haematocrit abnormal [Unknown]
  - Culture urine positive [Unknown]
  - Haemoglobin abnormal [Unknown]
  - Blood creatinine increased [Unknown]
  - Lower extremity mass [Unknown]
